FAERS Safety Report 16329041 (Version 3)
Quarter: 2019Q3

REPORT INFORMATION
  Report Type: Report from Study
  Country: None (occurrence: US)
  Receive Date: 20190519
  Receipt Date: 20190830
  Transmission Date: 20191004
  Serious: Yes (Hospitalization)
  Sender: FDA-Public Use
  Company Number: US-ABBVIE-19K-163-2787387-00

PATIENT
  Sex: Male
  Weight: 70.37 kg

DRUGS (1)
  1. HUMIRA [Suspect]
     Active Substance: ADALIMUMAB
     Indication: COLITIS ULCERATIVE
     Dosage: CF PEN
     Route: 058
     Dates: start: 20190513, end: 20190513

REACTIONS (6)
  - Diarrhoea [Recovering/Resolving]
  - Pain [Unknown]
  - Anaemia [Recovering/Resolving]
  - Dehydration [Recovering/Resolving]
  - Gastrointestinal infection [Recovering/Resolving]
  - Haematochezia [Recovering/Resolving]

NARRATIVE: CASE EVENT DATE: 2019
